FAERS Safety Report 13628279 (Version 1)
Quarter: 2017Q2

REPORT INFORMATION
  Report Type: Spontaneous
  Country: US (occurrence: US)
  Receive Date: 20170608
  Receipt Date: 20170608
  Transmission Date: 20170830
  Serious: Yes (Hospitalization)
  Sender: FDA-Public Use
  Company Number: None

PATIENT
  Age: 59 Year
  Sex: Male

DRUGS (2)
  1. METOPROLOL. [Suspect]
     Active Substance: METOPROLOL
     Indication: MITRAL VALVE REPLACEMENT
     Route: 048
     Dates: start: 20150101
  2. METOPROLOL. [Suspect]
     Active Substance: METOPROLOL
     Indication: ATRIAL FIBRILLATION
     Route: 048
     Dates: start: 20150101

REACTIONS (11)
  - Adverse drug reaction [None]
  - Hypovolaemia [None]
  - Urinary tract infection [None]
  - Hypophagia [None]
  - Electrocardiogram ST segment depression [None]
  - Dizziness [None]
  - Therapy cessation [None]
  - Therapy change [None]
  - Diarrhoea [None]
  - Tachycardia [None]
  - Supraventricular tachycardia [None]

NARRATIVE: CASE EVENT DATE: 20170529
